FAERS Safety Report 4576430-4 (Version None)
Quarter: 2005Q1

REPORT INFORMATION
  Report Type: 
  Country: None (occurrence: None)
  Receive Date: 20050207
  Receipt Date: 20050131
  Transmission Date: 20050727
  Serious: Yes (Other)
  Sender: FDA-Public Use
  Company Number: 2005-02-0038

PATIENT
  Age: 65 Year
  Sex: Male
  Weight: 60 kg

DRUGS (7)
  1. PEG-INTRON [Suspect]
     Indication: HEPATITIS C
     Dosage: 100 MCG QW SUBCUTANEOUS
     Route: 058
     Dates: start: 20050111, end: 20050125
  2. REBETOL [Suspect]
     Indication: HEPATITIS C
     Dosage: 600 MG ORAL
     Route: 048
     Dates: start: 20050111, end: 20050129
  3. URSO TABLETS [Concomitant]
  4. METHYCOBAL TABLETS [Concomitant]
  5. ETHYL ICOSAPENTATE [Concomitant]
  6. DIFENIDOL HYDROCHLORIDE [Concomitant]
  7. ASPIRIN [Concomitant]

REACTIONS (1)
  - THALAMUS HAEMORRHAGE [None]
